FAERS Safety Report 5583997-6 (Version None)
Quarter: 2008Q1

REPORT INFORMATION
  Report Type: 
  Country: None (occurrence: None)
  Receive Date: 20080103
  Receipt Date: 20071224
  Transmission Date: 20080703
  Serious: Yes (Death, Hospitalization)
  Sender: FDA-Public Use
  Company Number: 2007US003132

PATIENT
  Age: 64 Year
  Sex: Male

DRUGS (10)
  1. PROGRAF [Suspect]
     Indication: LIVER TRANSPLANT
  2. MYCOPHENOLATE MOFETIL [Suspect]
     Indication: LIVER TRANSPLANT
  3. ASPIRIN [Concomitant]
  4. METOPROLOL TARTRATE [Concomitant]
  5. FOLIC ACID [Concomitant]
  6. MAGNESIUM (MAGNESIUM) [Concomitant]
  7. CALCIUM CARBONATE [Concomitant]
  8. PROTONIX [Concomitant]
  9. MYCELEX [Concomitant]
  10. IRON (IRON) [Concomitant]

REACTIONS (9)
  - ASPERGILLOSIS [None]
  - BACTERIAL INFECTION [None]
  - BLOOD CULTURE POSITIVE [None]
  - ENTEROCOCCAL INFECTION [None]
  - GENERAL PHYSICAL HEALTH DETERIORATION [None]
  - HEPATITIS C [None]
  - OPPORTUNISTIC INFECTION [None]
  - SPUTUM CULTURE POSITIVE [None]
  - STAPHYLOCOCCAL INFECTION [None]
